FAERS Safety Report 6929315-X (Version None)
Quarter: 2010Q3

REPORT INFORMATION
  Report Type: 
  Country: None (occurrence: None)
  Receive Date: 20100813
  Receipt Date: 20100728
  Transmission Date: 20110219
  Serious: Yes (Other)
  Sender: FDA-Public Use
  Company Number: 654472

PATIENT
  Sex: Male

DRUGS (2)
  1. LABETALOL HCL [Suspect]
     Indication: PRODUCT USED FOR UNKNOWN INDICATION
     Dosage: 20 MG, STAT, INTRAVENOUS
     Route: 042
     Dates: start: 20100101, end: 20100101
  2. LOPRESSOR [Suspect]
     Indication: PRODUCT USED FOR UNKNOWN INDICATION
     Dosage: (1 MG/ML, 4 ML), Q10 X 3 DOSES, INJECTION
     Dates: start: 20100101, end: 20100101

REACTIONS (2)
  - BRAIN STEM INFARCTION [None]
  - CEREBRAL ISCHAEMIA [None]
